FAERS Safety Report 12859599 (Version 2)
Quarter: 2016Q4

REPORT INFORMATION
  Report Type: Report from Study
  Country: None (occurrence: US)
  Receive Date: 20161018
  Receipt Date: 20161115
  Transmission Date: 20170207
  Serious: Yes (Hospitalization, Disabling, Other)
  Sender: FDA-Public Use
  Company Number: US-ABBVIE-16P-163-1750697-00

PATIENT
  Age: 67 Year
  Sex: Female

DRUGS (17)
  1. CITALOPRAM [Concomitant]
     Active Substance: CITALOPRAM HYDROBROMIDE
     Indication: DEPRESSION
     Route: 048
     Dates: start: 20130521
  2. CLONZAPAM [Concomitant]
     Indication: RAPID EYE MOVEMENTS SLEEP ABNORMAL
     Dosage: 2 CAPSULES AT BEDTIME
     Route: 048
     Dates: start: 20120321
  3. MELATONIN [Concomitant]
     Active Substance: MELATONIN
     Indication: RAPID EYE MOVEMENTS SLEEP ABNORMAL
     Dosage: AT BEDTIME
     Route: 048
     Dates: start: 20150929
  4. PRAMIPEXOLE. [Concomitant]
     Active Substance: PRAMIPEXOLE
     Dosage: AT BEDTIME
     Route: 048
     Dates: start: 20160406
  5. AMANTADINE [Concomitant]
     Active Substance: AMANTADINE
     Indication: PARKINSON^S DISEASE
     Route: 048
     Dates: start: 20111109
  6. RYTARY 36.25/145MG [Concomitant]
     Indication: PARKINSON^S DISEASE
     Route: 048
     Dates: start: 20151110, end: 20160403
  7. HYDROCHOLOROTHYAZIDE LOSARTEN [Concomitant]
     Indication: HYPERTENSION
     Dosage: 25/100MG
     Route: 048
     Dates: start: 199604
  8. TASMAR [Concomitant]
     Active Substance: TOLCAPONE
     Indication: PARKINSON^S DISEASE
     Route: 048
     Dates: start: 20140729, end: 20160413
  9. PROBIOTIC FORMULA CAPSULE [Concomitant]
     Indication: ROUTINE HEALTH MAINTENANCE
     Route: 048
     Dates: start: 201604
  10. PARCOPA 25/100MG [Concomitant]
     Indication: PARKINSON^S DISEASE
     Route: 060
     Dates: start: 2009
  11. ARICEPT ACL [Concomitant]
     Indication: DEPRESSION
     Dosage: AT BEDTIME
     Route: 048
     Dates: start: 201503
  12. RYTARY 36.25/145MG [Concomitant]
     Dosage: AT BEDTIME
     Route: 048
     Dates: start: 20150404
  13. DULCOLAX NOS [Concomitant]
     Active Substance: BISACODYL OR DOCUSATE SODIUM
     Indication: CONSTIPATION
     Route: 048
     Dates: start: 201301
  14. DUODOPA [Suspect]
     Active Substance: CARBIDOPA\LEVODOPA
     Indication: PARKINSON^S DISEASE
     Dosage: 5.7/ML PER HOUR
     Route: 050
     Dates: start: 20160404
  15. ATENOLOL. [Concomitant]
     Active Substance: ATENOLOL
     Indication: HYPERTENSION
     Route: 048
     Dates: start: 199604
  16. TYLENOL EXTRA STRENGTH [Concomitant]
     Active Substance: ACETAMINOPHEN
     Indication: PAIN
     Route: 048
     Dates: start: 2000
  17. PRAMIPEXOLE. [Concomitant]
     Active Substance: PRAMIPEXOLE
     Indication: PARKINSON^S DISEASE
     Route: 048
     Dates: start: 20111109, end: 20160405

REACTIONS (2)
  - Tibia fracture [Recovering/Resolving]
  - Fibula fracture [Not Recovered/Not Resolved]

NARRATIVE: CASE EVENT DATE: 20161007
